FAERS Safety Report 4460428-0 (Version None)
Quarter: 2004Q3

REPORT INFORMATION
  Report Type: 
  Country: None (occurrence: None)
  Receive Date: 20040928
  Receipt Date: 20040624
  Transmission Date: 20050211
  Serious: No
  Sender: FDA-Public Use
  Company Number: US-GLAXOSMITHKLINE-A0515866A

PATIENT
  Age: 60 Year
  Sex: Female

DRUGS (4)
  1. SEREVENT [Suspect]
     Indication: ASTHMA
     Dosage: 1PUFF TWICE PER DAY
     Route: 055
     Dates: start: 20040501
  2. TILADE [Concomitant]
  3. ALBUTEROL [Concomitant]
  4. FLOVENT [Concomitant]

REACTIONS (1)
  - DRUG INEFFECTIVE [None]
